FAERS Safety Report 9551831 (Version 1)
Quarter: 2013Q3

REPORT INFORMATION
  Report Type: Spontaneous
  Country: US (occurrence: US)
  Receive Date: 20130925
  Receipt Date: 20130925
  Transmission Date: 20140515
  Serious: No
  Sender: FDA-Public Use
  Company Number: US-MYLANLABS-2013S1016774

PATIENT
  Age: 84 Year
  Sex: Female
  Weight: 43.09 kg

DRUGS (2)
  1. ATORVASTATIN CALCIUM TABLETS [Suspect]
     Route: 048
  2. ATORVASTATIN [Suspect]
     Dates: start: 201109

REACTIONS (1)
  - Myalgia [Not Recovered/Not Resolved]
